FAERS Safety Report 4319820-7 (Version None)
Quarter: 2004Q1

REPORT INFORMATION
  Report Type: 
  Country: None (occurrence: None)
  Receive Date: 20040317
  Receipt Date: 20040304
  Transmission Date: 20041129
  Serious: Yes (Hospitalization)
  Sender: FDA-Public Use
  Company Number: 2004-BP-01620BP (0)

PATIENT
  Age: 67 Year
  Sex: Male

DRUGS (6)
  1. AGGRENOX [Suspect]
     Indication: CEREBROVASCULAR ACCIDENT PROPHYLAXIS
     Dosage: PO
     Route: 048
     Dates: start: 20030101
  2. RISPERDAL [Suspect]
     Indication: DEMENTIA
     Dosage: 0.5 MG, X 2
  3. DEPAKOTE [Suspect]
     Dosage: SEE IMAGE
  4. PRILOSEC [Concomitant]
  5. ZOLOFT [Concomitant]
  6. AVANDIA [Concomitant]

REACTIONS (4)
  - ANAEMIA [None]
  - FOOT AMPUTATION [None]
  - TREMOR [None]
  - ULCER [None]
